FAERS Safety Report 21665023 (Version 12)
Quarter: 2024Q1

REPORT INFORMATION
  Report Type: Spontaneous
  Country: CA (occurrence: CA)
  Receive Date: 20221130
  Receipt Date: 20240318
  Transmission Date: 20240409
  Serious: Yes (Other)
  Sender: FDA-Public Use
  Company Number: CA-CELLTRION INC.-2022CA018368

PATIENT

DRUGS (15)
  1. INFLECTRA [Suspect]
     Active Substance: INFLIXIMAB-DYYB
     Indication: Colitis ulcerative
     Dosage: 600 MG AT Q 0, 2, 6 WEEK THEN EVERY 8 WEEKS
     Route: 042
     Dates: start: 20221005
  2. INFLECTRA [Suspect]
     Active Substance: INFLIXIMAB-DYYB
     Dosage: 600 MG AT 0, 2, 6 WEEK THEN EVERY 8 WEEKS
     Route: 042
     Dates: start: 20221021
  3. INFLECTRA [Suspect]
     Active Substance: INFLIXIMAB-DYYB
     Dosage: 600 MG AT 0, 2, 6 WEEK THEN EVERY 8 WEEKS
     Route: 042
     Dates: start: 20221116
  4. INFLECTRA [Suspect]
     Active Substance: INFLIXIMAB-DYYB
     Dosage: 600 MG AT 0, 2, 6 WEEK THEN EVERY 8 WEEKS
     Route: 042
     Dates: start: 20230111
  5. INFLECTRA [Suspect]
     Active Substance: INFLIXIMAB-DYYB
     Dosage: 600 MG AT 0, 2, 6 WEEK THEN EVERY 8 WEEKS
     Route: 042
     Dates: start: 20230111
  6. INFLECTRA [Suspect]
     Active Substance: INFLIXIMAB-DYYB
     Dosage: 600MG, EVERY 8 WEEKS
     Route: 042
     Dates: start: 20230308
  7. INFLECTRA [Suspect]
     Active Substance: INFLIXIMAB-DYYB
     Dosage: 600MG, EVERY 8 WEEKS
     Route: 042
     Dates: start: 20230308
  8. INFLECTRA [Suspect]
     Active Substance: INFLIXIMAB-DYYB
     Dosage: 600 MG EVERY 8 WEEKS
     Route: 042
     Dates: start: 20230509
  9. INFLECTRA [Suspect]
     Active Substance: INFLIXIMAB-DYYB
     Dosage: 600 MG EVERY 8 WEEKS
     Route: 042
     Dates: start: 20230704
  10. INFLECTRA [Suspect]
     Active Substance: INFLIXIMAB-DYYB
     Dosage: 600 MG EVERY 8 WEEKS
     Route: 042
     Dates: start: 20230704
  11. INFLECTRA [Suspect]
     Active Substance: INFLIXIMAB-DYYB
     Dosage: 600 MG EVERY 8 WEEKS
     Route: 042
     Dates: start: 20230829
  12. INFLECTRA [Suspect]
     Active Substance: INFLIXIMAB-DYYB
     Dosage: 1200 MG, AFTER 8 WEEKS
     Route: 042
     Dates: start: 20231017, end: 20231017
  13. INFLECTRA [Suspect]
     Active Substance: INFLIXIMAB-DYYB
     Dosage: 1200 MG EVERY 6 WEEKS
     Route: 042
     Dates: start: 20231205
  14. INFLECTRA [Suspect]
     Active Substance: INFLIXIMAB-DYYB
     Dosage: 1200 MG EVERY 6 WEEKS (AFTER 6 WEEKS AND 1 DAY)
     Route: 042
     Dates: start: 20240117
  15. INFLECTRA [Suspect]
     Active Substance: INFLIXIMAB-DYYB
     Dosage: 1200 MG EVERY 6 WEEKS (1200MG AFTER 6 WEEKS AND 1 DAY)
     Route: 042
     Dates: start: 20240229

REACTIONS (4)
  - Blood pressure increased [Not Recovered/Not Resolved]
  - Blood pressure fluctuation [Unknown]
  - Product administration interrupted [Unknown]
  - Off label use [Unknown]

NARRATIVE: CASE EVENT DATE: 20221021
